FAERS Safety Report 5483996-9 (Version None)
Quarter: 2007Q4

REPORT INFORMATION
  Report Type: 
  Country: None (occurrence: None)
  Receive Date: 20071012
  Receipt Date: 20070928
  Transmission Date: 20080405
  Serious: Yes (Other)
  Sender: FDA-Public Use
  Company Number: GB-RANBAXY-2007RR-10456

PATIENT

DRUGS (10)
  1. GABAPENTIN BASICS B 600MG FILMTABLETTEN [Suspect]
     Indication: BACK PAIN
     Dosage: 300 MG, BID
     Route: 048
     Dates: end: 20060607
  2. LYRICA [Suspect]
     Indication: DRUG USE FOR UNKNOWN INDICATION
  3. CITALOPRAM 10 MG TABLETS [Concomitant]
     Indication: DEPRESSION
     Route: 048
  4. CYCLOPHOSPHAMIDE [Concomitant]
     Indication: BURKITT'S LYMPHOMA
     Dosage: UNK
     Dates: start: 20060601
  5. DOXORUBICIN HCL [Concomitant]
     Indication: BURKITT'S LYMPHOMA
     Dosage: UNK
     Dates: start: 20060601
  6. METHOTREXATE [Concomitant]
     Indication: BURKITT'S LYMPHOMA
     Dosage: UNK
     Dates: start: 20060601
  7. OMEPRAZOLE [Concomitant]
     Indication: STOMACH DISCOMFORT
     Route: 048
  8. OMEPRAZOLE [Concomitant]
     Indication: GASTROOESOPHAGEAL REFLUX DISEASE
  9. PARACETAMOL TABLETS BP 500MG [Concomitant]
     Indication: BACK PAIN
     Dosage: 1 G, QID
     Route: 048
  10. VINCRISTINE [Concomitant]
     Indication: BURKITT'S LYMPHOMA
     Dosage: UNK
     Dates: start: 20060601

REACTIONS (5)
  - CONVULSION [None]
  - DRUG WITHDRAWAL SYNDROME [None]
  - LIVER FUNCTION TEST ABNORMAL [None]
  - LOSS OF CONSCIOUSNESS [None]
  - MUSCLE SPASMS [None]
